FAERS Safety Report 16102917 (Version 6)
Quarter: 2020Q4

REPORT INFORMATION
  Report Type: Report from Study
  Country: None (occurrence: DE)
  Receive Date: 20190321
  Receipt Date: 20201207
  Transmission Date: 20210113
  Serious: Yes (Other)
  Sender: FDA-Public Use
  Company Number: DE-ABBVIE-19K-062-2707553-00

PATIENT
  Sex: Female
  Weight: 114 kg

DRUGS (3)
  1. HUMIRA [Suspect]
     Active Substance: ADALIMUMAB
     Indication: PSORIATIC ARTHROPATHY
  2. HUMIRA [Suspect]
     Active Substance: ADALIMUMAB
     Indication: PSORIASIS
     Route: 058
     Dates: start: 20141208, end: 20190204
  3. FEXOFENADINE [Suspect]
     Active Substance: FEXOFENADINE HYDROCHLORIDE
     Indication: CHRONIC SPONTANEOUS URTICARIA
     Route: 048
     Dates: start: 201507

REACTIONS (4)
  - Live birth [Unknown]
  - Caesarean section [Unknown]
  - Gestational hypertension [Unknown]
  - Exposure during pregnancy [Unknown]
